FAERS Safety Report 9804013 (Version 1)
Quarter: 2014Q1

REPORT INFORMATION
  Report Type: Spontaneous
  Country: US (occurrence: US)
  Receive Date: 20140108
  Receipt Date: 20140108
  Transmission Date: 20141002
  Serious: Yes (Other)
  Sender: FDA-Public Use
  Company Number: US-PFIZER INC-2014004547

PATIENT
  Sex: Female

DRUGS (1)
  1. LYRICA [Suspect]
     Dosage: UNK

REACTIONS (8)
  - Withdrawal syndrome [Unknown]
  - Insomnia [Unknown]
  - Muscle spasms [Unknown]
  - Hallucination [Unknown]
  - Abnormal behaviour [Unknown]
  - Mood altered [Unknown]
  - Feeling abnormal [Unknown]
  - Vision blurred [Unknown]
